FAERS Safety Report 21111889 (Version 3)
Quarter: 2022Q3

REPORT INFORMATION
  Report Type: Report from Study
  Country: US (occurrence: US)
  Receive Date: 20220721
  Receipt Date: 20220923
  Transmission Date: 20221027
  Serious: Yes (Other)
  Sender: FDA-Public Use
  Company Number: US-NOVARTISPH-NVSC2022US160895

PATIENT
  Sex: Female

DRUGS (1)
  1. COSENTYX [Suspect]
     Active Substance: SECUKINUMAB
     Indication: Product used for unknown indication
     Dosage: UNK
     Route: 065

REACTIONS (7)
  - Hip fracture [Unknown]
  - Fall [Unknown]
  - Pruritus [Unknown]
  - Malaise [Unknown]
  - Psoriasis [Unknown]
  - Rash [Unknown]
  - Inappropriate schedule of product administration [Unknown]
